FAERS Safety Report 21719289 (Version 2)
Quarter: 2022Q4

REPORT INFORMATION
  Report Type: Report from Study
  Country: US (occurrence: US)
  Receive Date: 20221213
  Receipt Date: 20221215
  Transmission Date: 20230113
  Serious: Yes (Other)
  Sender: FDA-Public Use
  Company Number: US-ABBVIE-4232708

PATIENT
  Age: 68 Year
  Sex: Male
  Weight: 145.14 kg

DRUGS (3)
  1. IMBRUVICA [Suspect]
     Active Substance: IBRUTINIB
     Indication: B-cell lymphoma
     Dosage: FORM STRENGTH: 140 MG
     Route: 048
     Dates: start: 20221025
  2. DOXAZOSIN MESYLATE [Concomitant]
     Active Substance: DOXAZOSIN MESYLATE
     Indication: Urinary tract disorder
  3. FINASTERIDE EG [Concomitant]
     Indication: Prostatomegaly

REACTIONS (8)
  - Malignant melanoma [Not Recovered/Not Resolved]
  - Urinary tract disorder [Not Recovered/Not Resolved]
  - Bone pain [Not Recovered/Not Resolved]
  - Insomnia [Not Recovered/Not Resolved]
  - Lymphoma [Not Recovered/Not Resolved]
  - Prostatic disorder [Unknown]
  - Fatigue [Not Recovered/Not Resolved]
  - Fatigue [Not Recovered/Not Resolved]

NARRATIVE: CASE EVENT DATE: 20221001
